FAERS Safety Report 5738581-8 (Version None)
Quarter: 2008Q2

REPORT INFORMATION
  Report Type: 
  Country: None (occurrence: None)
  Receive Date: 20080512
  Receipt Date: 20080512
  Transmission Date: 20081010
  Serious: Yes (Hospitalization)
  Sender: FDA-Public Use
  Company Number: None

PATIENT
  Sex: Female
  Weight: 15.5 kg

DRUGS (5)
  1. MERCAPTOPURINE [Suspect]
     Dosage: 400 MG
  2. METHOTREXATE [Suspect]
     Dosage: 16.25 MG
  3. DEXAMETHASONE TAB [Suspect]
     Dosage: 20 MG
  4. VINCRISTINE SULFATE [Suspect]
     Dosage: 1MG
  5. TRIMETHOPRIM + SULFAMETHOXAZOLE [Concomitant]

REACTIONS (3)
  - ADRENAL INSUFFICIENCY [None]
  - GLYCOGEN STORAGE DISORDER [None]
  - HYPOGLYCAEMIA [None]
